FAERS Safety Report 6500196-1 (Version None)
Quarter: 2009Q4

REPORT INFORMATION
  Report Type: 
  Country: None (occurrence: None)
  Receive Date: 20091127
  Receipt Date: 20081028
  Transmission Date: 20100525
  Serious: Yes (Other)
  Sender: FDA-Public Use
  Company Number: WAES 0802USA03119

PATIENT
  Age: 49 Year
  Sex: Female
  Weight: 88.905 kg

DRUGS (17)
  1. FOSAMAX [Suspect]
     Indication: OSTEOPOROSIS
     Dosage: 70 MG/PO
     Route: 048
     Dates: start: 20050901
  2. AMBIEN [Concomitant]
  3. DETROL [Concomitant]
  4. FLONASE [Concomitant]
  5. SUMATRIPTAN SUCCINATE (IMITREX) [Concomitant]
  6. MIDRIN [Concomitant]
  7. PREVACID [Concomitant]
  8. PRILOSEC [Concomitant]
  9. SENOKOT [Concomitant]
  10. SYNTHROID [Concomitant]
  11. ZYRTEC [Concomitant]
  12. ALPRAZOLAM [Concomitant]
  13. BACLOFEN [Concomitant]
  14. CYCLOBENZAPRINE HYDROCHLORIDE [Concomitant]
  15. DIAZEPAM [Concomitant]
  16. METOCLOPRAMIDE [Concomitant]
  17. TRAZODONE HYDROCHLORIDE [Concomitant]

REACTIONS (8)
  - CHEST PAIN [None]
  - DENTAL CARIES [None]
  - HEADACHE [None]
  - ORAL DISORDER [None]
  - OSTEONECROSIS [None]
  - PAIN IN JAW [None]
  - RECTOCELE [None]
  - TRISMUS [None]
